FAERS Safety Report 8806115 (Version 1)
Quarter: 2012Q4

REPORT INFORMATION
  Report Type: 
  Country: US (occurrence: US)
  Receive Date: 20120925
  Receipt Date: 20120925
  Transmission Date: 20130627
  Serious: Yes (Hospitalization)
  Sender: FDA-Public Use
  Company Number: US-009507513-1209USA008775

PATIENT
  Age: 60 Year
  Sex: Male

DRUGS (4)
  1. VICTRELIS [Suspect]
     Indication: HEPATITIS C
     Dosage: 800 mg, tid
     Route: 048
     Dates: start: 20120419, end: 20120914
  2. REBETOL [Suspect]
     Indication: HEPATITIS C
  3. PEGASYS [Concomitant]
     Indication: HEPATITIS C
  4. PROCRIT [Concomitant]

REACTIONS (5)
  - Syncope [Unknown]
  - Decreased appetite [Unknown]
  - Weight decreased [Unknown]
  - Pyrexia [Unknown]
  - Anaemia [Unknown]
